FAERS Safety Report 20381291 (Version 1)
Quarter: 2022Q1

REPORT INFORMATION
  Report Type: Report from Study
  Country: CA (occurrence: CA)
  Receive Date: 20220127
  Receipt Date: 20220127
  Transmission Date: 20220423
  Serious: Yes (Hospitalization, Other)
  Sender: FDA-Public Use
  Company Number: CA-BRISTOL-MYERS SQUIBB COMPANY-BMS-2021-091391

PATIENT
  Age: 53 Year
  Sex: Female
  Weight: 72 kg

DRUGS (25)
  1. NIVOLUMAB [Suspect]
     Active Substance: NIVOLUMAB
     Indication: Pleural mesothelioma
     Dosage: 360 MILLIGRAM, Q3WK
     Route: 042
     Dates: start: 20210302, end: 20210929
  2. YERVOY [Suspect]
     Active Substance: IPILIMUMAB
     Indication: Pleural mesothelioma
     Dosage: 66 MILLIGRAM, Q6WK
     Route: 042
     Dates: start: 20210302
  3. CHOLECALCIFEROL [Concomitant]
     Active Substance: CHOLECALCIFEROL
     Indication: Product used for unknown indication
     Dosage: UNK
     Route: 065
  4. VITAMIN C [Concomitant]
     Active Substance: ASCORBIC ACID
     Indication: Product used for unknown indication
     Dosage: 1 (1,000 MG) TABLET DAILY
     Route: 048
  5. ASPIRIN [Concomitant]
     Active Substance: ASPIRIN
     Indication: Product used for unknown indication
     Dosage: 1 (81 MG) TABLET, DELAYED RELEASE (E.G.) DAILY
     Route: 048
  6. SYNTHROID [Concomitant]
     Active Substance: LEVOTHYROXINE SODIUM
     Indication: Product used for unknown indication
     Dosage: UNK
     Route: 065
  7. DEXAMETHASONE [Concomitant]
     Active Substance: DEXAMETHASONE
     Indication: Product used for unknown indication
     Dosage: (2 MG) DAILY FOR 2 DAYS
     Route: 048
     Dates: end: 20210319
  8. FOLIC ACID [Concomitant]
     Active Substance: FOLIC ACID
     Indication: Product used for unknown indication
     Dosage: 1 TABLET (OF 5 MG) DAILY
     Route: 048
     Dates: end: 20210409
  9. IRON [Concomitant]
     Active Substance: IRON
     Indication: Product used for unknown indication
     Dosage: IRON-VITAMIN E-VIT B COMP C (TABLET) - (150 MG) DAILY
     Route: 048
     Dates: end: 20210319
  10. VITAMIN E [Concomitant]
     Active Substance: .ALPHA.-TOCOPHEROL
     Indication: Product used for unknown indication
     Dosage: IRON-VITAMIN E-VIT B COMP C (TABLET) - (150 MG) DAILY
     Route: 048
     Dates: end: 20210319
  11. VITAMIN B-COMPLEX [Concomitant]
     Active Substance: DEXPANTHENOL\NIACINAMIDE\PYRIDOXINE HYDROCHLORIDE\RIBOFLAVIN 5^-PHOSPHATE SODIUM\THIAMINE HYDROCHLOR
     Indication: Product used for unknown indication
     Dosage: IRON-VITAMIN E-VIT B COMP C (TABLET) - (150 MG) TABLET DAILY
     Route: 048
     Dates: end: 20210319
  12. VITAMIN B-COMPLEX [Concomitant]
     Active Substance: DEXPANTHENOL\NIACINAMIDE\PYRIDOXINE HYDROCHLORIDE\RIBOFLAVIN 5^-PHOSPHATE SODIUM\THIAMINE HYDROCHLOR
     Dosage: IRON-VITAMIN E-VIT B COMP C (TABLET) - (150 MG) TABLET DAILY
     Route: 048
     Dates: end: 20210319
  13. MAGNESIUM [Concomitant]
     Active Substance: MAGNESIUM
     Indication: Product used for unknown indication
     Dosage: 250 MG TABLET DAILY
     Route: 048
     Dates: end: 20211108
  14. POLYETHYLENE GLYCOL 3350 [Concomitant]
     Active Substance: POLYETHYLENE GLYCOL 3350
     Indication: Product used for unknown indication
     Dosage: 17 G POWDER ORAL BID PRN
     Route: 048
     Dates: end: 20211018
  15. POTASSIUM CHLORIDE [Concomitant]
     Active Substance: POTASSIUM CHLORIDE
     Indication: Product used for unknown indication
     Dosage: (8 MEQ) TABLET B.I.D.
     Route: 048
     Dates: end: 20211108
  16. RAMIPRIL [Concomitant]
     Active Substance: RAMIPRIL
     Indication: Product used for unknown indication
     Dosage: 1 CAPSULE (OF 5 MG) DAILY
     Route: 048
     Dates: end: 20210319
  17. ATIVAN [Concomitant]
     Active Substance: LORAZEPAM
     Indication: Product used for unknown indication
     Dosage: TABLET, SUBLINGUAL PRN
     Route: 060
  18. B 100 [Concomitant]
     Indication: Product used for unknown indication
     Dosage: B COMPLEX 100 (KIRKLAND)-1 TABLET DAILY
     Route: 048
  19. CANNABIDIOL\HERBALS [Concomitant]
     Active Substance: CANNABIDIOL\HERBALS
     Indication: Product used for unknown indication
     Dosage: OIL PRN
     Route: 048
  20. VITAMIN D3 [Concomitant]
     Active Substance: CHOLECALCIFEROL
     Indication: Product used for unknown indication
     Dosage: 1 TABLET (OF 1000 IU) DAILY
     Route: 048
  21. GLUCOSAMINE + CHONDROITIN + MSM [Concomitant]
     Indication: Product used for unknown indication
     Dosage: 1 (500-400-400 MG) TABLET DAILY
     Route: 048
  22. HYDROCORTISONE [Concomitant]
     Active Substance: HYDROCORTISONE
     Indication: Product used for unknown indication
     Dosage: UNK
     Route: 048
  23. LEVOTHYROXINE [Concomitant]
     Active Substance: LEVOTHYROXINE
     Indication: Product used for unknown indication
     Dosage: 1 (50 MCG) TABLET DAILY
     Route: 048
  24. PANTOPRAZOLE SODIUM [Concomitant]
     Active Substance: PANTOPRAZOLE SODIUM
     Indication: Product used for unknown indication
     Dosage: (20 MG) TABLET DELAYED RELEASE (E.G.) ORAL DAILY
     Route: 048
  25. TYLENOL [Concomitant]
     Active Substance: ACETAMINOPHEN
     Indication: Product used for unknown indication
     Dosage: ORAL PRN
     Route: 048

REACTIONS (3)
  - Oesophageal-pulmonary fistula [Recovering/Resolving]
  - Gastric ulcer [Unknown]
  - Fatigue [Unknown]

NARRATIVE: CASE EVENT DATE: 20210908
